FAERS Safety Report 24213460 (Version 1)
Quarter: 2024Q3

REPORT INFORMATION
  Report Type: Spontaneous
  Country: US (occurrence: None)
  Receive Date: 20240815
  Receipt Date: 20240815
  Transmission Date: 20241017
  Serious: Yes (Hospitalization)
  Sender: Public
  Company Number: None

PATIENT
  Age: 63 Year
  Sex: Female
  Weight: 51.4 kg

DRUGS (3)
  1. CARBOPLATIN [Suspect]
     Active Substance: CARBOPLATIN
     Dates: end: 20240718
  2. PEMBROLIZUMAB [Suspect]
     Active Substance: PEMBROLIZUMAB
     Dates: end: 20240627
  3. PEMETREXED [Suspect]
     Active Substance: PEMETREXED
     Dates: end: 20240718

REACTIONS (7)
  - Thrombosis [None]
  - Pulmonary embolism [None]
  - Anaemia [None]
  - Hypomagnesaemia [None]
  - Brain natriuretic peptide increased [None]
  - Asthenia [None]
  - Brain neoplasm malignant [None]

NARRATIVE: CASE EVENT DATE: 20240727
